FAERS Safety Report 12874208 (Version 6)
Quarter: 2019Q3

REPORT INFORMATION
  Report Type: Spontaneous
  Country: US (occurrence: US)
  Receive Date: 20161021
  Receipt Date: 20190709
  Transmission Date: 20191004
  Serious: Yes (Other)
  Sender: FDA-Public Use
  Company Number: US-TEVA-705828USA

PATIENT
  Sex: Female

DRUGS (1)
  1. NUVIGIL [Suspect]
     Active Substance: ARMODAFINIL
     Route: 065

REACTIONS (5)
  - Inappropriate schedule of product administration [Unknown]
  - Visual impairment [Unknown]
  - Fatigue [Unknown]
  - Cystitis [Unknown]
  - Dehydration [Unknown]
